FAERS Safety Report 15851935 (Version 3)
Quarter: 2019Q1

REPORT INFORMATION
  Report Type: Spontaneous
  Country: US (occurrence: US)
  Receive Date: 20190122
  Receipt Date: 20190213
  Transmission Date: 20190417
  Serious: No
  Sender: FDA-Public Use
  Company Number: US-AMGEN-USASP2019007251

PATIENT
  Age: 82 Year
  Sex: Male
  Weight: 78.91 kg

DRUGS (8)
  1. NPLATE [Suspect]
     Active Substance: ROMIPLOSTIM
     Dosage: 385 MUG, UNK
     Route: 065
     Dates: start: 201809
  2. DECADRON [Concomitant]
     Active Substance: DEXAMETHASONE
     Indication: IMMUNE THROMBOCYTOPENIC PURPURA
     Dosage: 40 MG, QD (4 DAYS DAILY EVERY 28 DAYS)
     Route: 048
     Dates: start: 20180425, end: 20181211
  3. NPLATE [Suspect]
     Active Substance: ROMIPLOSTIM
     Dosage: 408 MUG, UNK
     Route: 065
     Dates: start: 201809
  4. NPLATE [Suspect]
     Active Substance: ROMIPLOSTIM
     Indication: IMMUNE THROMBOCYTOPENIC PURPURA
     Dosage: 79.4 MUG, QWK
     Route: 065
     Dates: start: 20180501
  5. NPLATE [Suspect]
     Active Substance: ROMIPLOSTIM
     Dosage: 471 MUG, QWK
     Route: 065
     Dates: start: 20181009
  6. RITUXAN [Concomitant]
     Active Substance: RITUXIMAB
     Indication: IMMUNE THROMBOCYTOPENIC PURPURA
     Dosage: 746 MG, BID
     Route: 042
     Dates: start: 20180501, end: 20180508
  7. NPLATE [Suspect]
     Active Substance: ROMIPLOSTIM
     Dosage: 308 MUG, UNK
     Route: 065
     Dates: start: 201808
  8. PREDNISONE. [Concomitant]
     Active Substance: PREDNISONE
     Indication: IMMUNE THROMBOCYTOPENIC PURPURA
     Dosage: 5 MG, QD
     Route: 048
     Dates: start: 20180404, end: 20180425

REACTIONS (2)
  - Drug effect incomplete [Not Recovered/Not Resolved]
  - Platelet count decreased [Unknown]

NARRATIVE: CASE EVENT DATE: 20181002
